FAERS Safety Report 9618774 (Version 3)
Quarter: 2013Q4

REPORT INFORMATION
  Report Type: Spontaneous
  Country: JP (occurrence: JP)
  Receive Date: 20131014
  Receipt Date: 20131220
  Transmission Date: 20140711
  Serious: Yes (Life-Threatening)
  Sender: FDA-Public Use
  Company Number: JP-ROCHE-1287939

PATIENT
  Age: 62 Year
  Sex: Female
  Weight: 50 kg

DRUGS (7)
  1. PERJETA [Suspect]
     Indication: BREAST CANCER METASTATIC
     Route: 041
     Dates: start: 20130926, end: 20130926
  2. HERCEPTIN [Suspect]
     Indication: BREAST CANCER METASTATIC
     Route: 041
     Dates: start: 20121017, end: 20121017
  3. HERCEPTIN [Suspect]
     Indication: BREAST CANCER METASTATIC
     Route: 041
     Dates: start: 20121107, end: 20130220
  4. HERCEPTIN [Suspect]
     Indication: BREAST CANCER METASTATIC
     Route: 041
     Dates: start: 20130314, end: 20130829
  5. HERCEPTIN [Suspect]
     Indication: BREAST CANCER METASTATIC
     Route: 041
     Dates: start: 20130926, end: 20130926
  6. TAXOTERE [Suspect]
     Indication: BREAST CANCER METASTATIC
     Route: 041
     Dates: start: 20130314, end: 20130829
  7. TAXOTERE [Suspect]
     Indication: BREAST CANCER METASTATIC
     Route: 041
     Dates: start: 20130926, end: 20130926

REACTIONS (4)
  - Interstitial lung disease [Recovering/Resolving]
  - Respiratory failure [Not Recovered/Not Resolved]
  - Pneumocystis jirovecii pneumonia [Unknown]
  - Cytomegalovirus test positive [Unknown]
